FAERS Safety Report 7688721-9 (Version None)
Quarter: 2011Q3

REPORT INFORMATION
  Report Type: 
  Country: None (occurrence: None)
  Receive Date: 20110817
  Receipt Date: 20110811
  Transmission Date: 20111222
  Serious: Yes (Hospitalization)
  Sender: FDA-Public Use
  Company Number: FR-GLAXOSMITHKLINE-B0738930A

PATIENT
  Age: 87 Year
  Sex: Female

DRUGS (3)
  1. CRESTOR [Concomitant]
     Dosage: 5MG PER DAY
     Route: 065
  2. MODOPAR [Concomitant]
     Dosage: 312.5MG PER DAY
     Route: 065
  3. PAROXETINE HCL [Suspect]
     Indication: PRODUCT USED FOR UNKNOWN INDICATION
     Dosage: 20MG PER DAY
     Route: 048

REACTIONS (5)
  - PARTIAL SEIZURES [None]
  - FALL [None]
  - EYE DISORDER [None]
  - MUTISM [None]
  - CEREBELLAR SYNDROME [None]
